FAERS Safety Report 9139791 (Version 1)
Quarter: 2013Q1

REPORT INFORMATION
  Report Type: Spontaneous
  Country: US (occurrence: US)
  Receive Date: 20130305
  Receipt Date: 20130305
  Transmission Date: 20140127
  Serious: No
  Sender: FDA-Public Use
  Company Number: US-ENDO PHARMACEUTICALS INC.-SPLN20120054

PATIENT
  Sex: Female
  Weight: 48.12 kg

DRUGS (3)
  1. SUPPRELIN LA [Suspect]
     Indication: PRECOCIOUS PUBERTY
     Route: 058
     Dates: start: 201106
  2. SUPPRELIN LA [Suspect]
     Route: 058
     Dates: end: 201106
  3. GROWTH HORMONE [Concomitant]
     Indication: PRODUCT USED FOR UNKNOWN INDICATION
     Dosage: UNKNOWN
     Route: 065

REACTIONS (3)
  - Cystitis [Unknown]
  - Drug ineffective [Not Recovered/Not Resolved]
  - Affect lability [Not Recovered/Not Resolved]
